FAERS Safety Report 16490560 (Version 1)
Quarter: 2019Q2

REPORT INFORMATION
  Report Type: Spontaneous
  Country: GB (occurrence: GB)
  Receive Date: 20190628
  Receipt Date: 20190628
  Transmission Date: 20190711
  Serious: Yes (Other)
  Sender: FDA-Public Use
  Company Number: GB-GILEAD-2019-0415512

PATIENT
  Age: 50 Year
  Sex: Female
  Weight: 41 kg

DRUGS (6)
  1. OMEPRAZOLE. [Concomitant]
     Active Substance: OMEPRAZOLE
  2. QUETIAPINE. [Concomitant]
     Active Substance: QUETIAPINE
  3. DIAZEPAM. [Concomitant]
     Active Substance: DIAZEPAM
  4. EPCLUSA [Suspect]
     Active Substance: SOFOSBUVIR\VELPATASVIR
     Indication: HEPATITIS C
     Route: 048
     Dates: start: 20190424
  5. THYROXINE [Concomitant]
     Active Substance: LEVOTHYROXINE
  6. GABAPENTIN. [Concomitant]
     Active Substance: GABAPENTIN

REACTIONS (1)
  - Hot flush [Not Recovered/Not Resolved]

NARRATIVE: CASE EVENT DATE: 20190424
